FAERS Safety Report 18181556 (Version 1)
Quarter: 2020Q3

REPORT INFORMATION
  Report Type: Spontaneous
  Country: FR (occurrence: FR)
  Receive Date: 20200821
  Receipt Date: 20200821
  Transmission Date: 20201103
  Serious: Yes (Hospitalization)
  Sender: FDA-Public Use
  Company Number: FR-CADILA HEALTHCARE LIMITED-FR-ZYDUS-022831

PATIENT

DRUGS (4)
  1. AMIODARONE [Suspect]
     Active Substance: AMIODARONE
     Indication: ARRHYTHMIA
     Dosage: 200 MILLIGRAM,(INTERVAL :1 DAYS)
     Route: 048
     Dates: start: 2013, end: 20180227
  2. COUMADINE [Concomitant]
     Active Substance: WARFARIN SODIUM
     Indication: ARRHYTHMIA
     Route: 048
     Dates: start: 2013
  3. PALMIER DE FLORIDE (EXTRAIT LIPIDOSTEROLIQUE DE),SERENOA REPENS (EXTRA [Concomitant]
     Indication: BENIGN PROSTATIC HYPERPLASIA
     Dosage: 160 MILLIGRAM,(INTERVAL :1 DAYS)
     Route: 048
     Dates: start: 2015
  4. ALFUZOSINE HCL [Concomitant]
     Active Substance: ALFUZOSIN HYDROCHLORIDE
     Indication: BENIGN PROSTATIC HYPERPLASIA
     Dosage: 1 DOSAGE FORM,(INTERVAL :1 DAYS)
     Route: 048
     Dates: start: 2015

REACTIONS (1)
  - Hepatocellular injury [Recovering/Resolving]

NARRATIVE: CASE EVENT DATE: 20180226
